FAERS Safety Report 7375096-8 (Version None)
Quarter: 2011Q1

REPORT INFORMATION
  Report Type: 
  Country: None (occurrence: None)
  Receive Date: 20110325
  Receipt Date: 20110314
  Transmission Date: 20110831
  Serious: Yes (Hospitalization)
  Sender: FDA-Public Use
  Company Number: IT-SANOFI-AVENTIS-2011SA015193

PATIENT
  Age: 67 Year
  Sex: Female

DRUGS (3)
  1. MULTAQ [Suspect]
     Route: 048
     Dates: start: 20110223, end: 20110301
  2. OXYGEN [Concomitant]
     Indication: CHRONIC OBSTRUCTIVE PULMONARY DISEASE
     Route: 055
  3. ALL OTHER THERAPEUTIC PRODUCTS [Concomitant]
     Route: 065

REACTIONS (3)
  - RENAL FAILURE [None]
  - ANURIA [None]
  - RENAL TUBULAR NECROSIS [None]
